FAERS Safety Report 6266121-6 (Version None)
Quarter: 2009Q3

REPORT INFORMATION
  Report Type: 
  Country: None (occurrence: None)
  Receive Date: 20090709
  Receipt Date: 20090625
  Transmission Date: 20100115
  Serious: Yes (Death, Hospitalization)
  Sender: FDA-Public Use
  Company Number: POMP-1000647

PATIENT
  Age: 32 Year
  Sex: Female
  Weight: 157 kg

DRUGS (1)
  1. MYOZYME [Suspect]
     Indication: GLYCOGEN STORAGE DISEASE TYPE II
     Dosage: 2300 MG, Q2W, INTRAVENOUS
     Route: 042
     Dates: start: 20080520, end: 20090520

REACTIONS (1)
  - DYSPNOEA [None]
